FAERS Safety Report 6780154-2 (Version None)
Quarter: 2010Q2

REPORT INFORMATION
  Report Type: 
  Country: None (occurrence: None)
  Receive Date: 20100618
  Receipt Date: 20100610
  Transmission Date: 20101027
  Serious: Yes (Other)
  Sender: FDA-Public Use
  Company Number: US-PFIZER INC-2010014820

PATIENT
  Sex: Female

DRUGS (2)
  1. DETROL [Suspect]
     Dosage: UNK
     Dates: start: 20050101
  2. TOVIAZ [Suspect]
     Indication: HYPERTONIC BLADDER

REACTIONS (1)
  - GLAUCOMA [None]
